FAERS Safety Report 5498672-6 (Version None)
Quarter: 2007Q4

REPORT INFORMATION
  Report Type: 
  Country: None (occurrence: None)
  Receive Date: 20071026
  Receipt Date: 20071016
  Transmission Date: 20080405
  Serious: Yes (Other)
  Sender: FDA-Public Use
  Company Number: DEWYE895021JUN07

PATIENT
  Sex: Male

DRUGS (2)
  1. VENLAFAXINE HCL [Suspect]
     Indication: ANXIETY
     Route: 064
     Dates: start: 20030901, end: 20040101
  2. VENLAFAXINE HCL [Suspect]
     Indication: DEPRESSION

REACTIONS (3)
  - DRUG EXPOSURE DURING PREGNANCY [None]
  - EPILEPSY [None]
  - FEBRILE CONVULSION [None]
